FAERS Safety Report 7177218-0 (Version None)
Quarter: 2010Q4

REPORT INFORMATION
  Report Type: 
  Country: None (occurrence: None)
  Receive Date: 20101220
  Receipt Date: 20101209
  Transmission Date: 20110411
  Serious: Yes (Life-Threatening)
  Sender: FDA-Public Use
  Company Number: SE-ROCHE-747186

PATIENT
  Age: 61 Year
  Sex: Female

DRUGS (6)
  1. ROACTEMRA [Suspect]
     Dosage: DOSE: 1GMM, DRUG NAME: ROACTEMRA CONC FOR SOL FOR INF 20MG/ML
     Route: 042
     Dates: start: 20090526, end: 20100914
  2. METOJECT [Concomitant]
     Dosage: DRUG NAME: METOJECT SOLUTION FOR INJECTION, PRE-FILLED SYRINGE 10MG/ML
  3. FOSAMAX [Concomitant]
     Dosage: DRUG NAME: FOSAMAX WEEK TABLET 70 MG
  4. LEVEMIR [Concomitant]
     Dosage: DRUG NAME: LEVEMIR SOLUTION FOR INJECTION, CARTRIDGE 100U/ML
  5. ATARAX [Concomitant]
  6. OMEPRAZOLE [Concomitant]

REACTIONS (3)
  - GASTRIC ULCER [None]
  - HAEMATEMESIS [None]
  - MELAENA [None]
